FAERS Safety Report 13648027 (Version 2)
Quarter: 2017Q2

REPORT INFORMATION
  Report Type: Spontaneous
  Country: BR (occurrence: BR)
  Receive Date: 20170613
  Receipt Date: 20170620
  Transmission Date: 20170830
  Serious: Yes (Other)
  Sender: FDA-Public Use
  Company Number: BR-PFIZER INC-2017253271

PATIENT
  Age: 32 Year
  Sex: Female

DRUGS (1)
  1. XELJANZ [Suspect]
     Active Substance: TOFACITINIB CITRATE
     Dosage: UNK, 2X/DAY
     Dates: start: 201704

REACTIONS (3)
  - Laryngeal oedema [Unknown]
  - Anaphylactic reaction [Unknown]
  - Generalised oedema [Unknown]

NARRATIVE: CASE EVENT DATE: 2017
